FAERS Safety Report 5844844-8 (Version None)
Quarter: 2008Q3

REPORT INFORMATION
  Report Type: 
  Country: None (occurrence: None)
  Receive Date: 20080814
  Receipt Date: 20080811
  Transmission Date: 20090109
  Serious: Yes (Other)
  Sender: FDA-Public Use
  Company Number: DE-BAYER-200822325GPV

PATIENT
  Sex: Female
  Weight: 140 kg

DRUGS (1)
  1. MIRENA [Suspect]
     Indication: CONTRACEPTION
     Route: 015
     Dates: start: 20060101

REACTIONS (3)
  - BACK PAIN [None]
  - THROMBOSIS [None]
  - WEIGHT INCREASED [None]
